FAERS Safety Report 23943724 (Version 1)
Quarter: 2024Q2

REPORT INFORMATION
  Report Type: Spontaneous
  Country: US (occurrence: US)
  Receive Date: 20240606
  Receipt Date: 20240606
  Transmission Date: 20240716
  Serious: No
  Sender: FDA-Public Use
  Company Number: US-AUROBINDO-AUR-APL-2023-044424

PATIENT
  Age: 84 Year
  Sex: Female
  Weight: 67 kg

DRUGS (4)
  1. CAPECITABINE [Suspect]
     Active Substance: CAPECITABINE
     Indication: Neoplasm malignant
     Dosage: 2 DOSAGE FORM, DAILY
     Route: 065
     Dates: start: 202208
  2. CAPECITABINE [Suspect]
     Active Substance: CAPECITABINE
     Dosage: 3 DOSAGE FORM, DAILY
     Route: 065
     Dates: end: 20230511
  3. ELIQUIS [Concomitant]
     Active Substance: APIXABAN
     Indication: Anticoagulant therapy
     Dosage: UNK
     Route: 065
  4. LEVOTHYROXINE [Concomitant]
     Active Substance: LEVOTHYROXINE\LEVOTHYROXINE SODIUM
     Indication: Thyroid disorder
     Dosage: UNK
     Route: 065

REACTIONS (4)
  - Dry eye [Recovering/Resolving]
  - Keratitis [Unknown]
  - Photophobia [Recovering/Resolving]
  - Therapy change [Unknown]

NARRATIVE: CASE EVENT DATE: 20230401
